FAERS Safety Report 16361165 (Version 1)
Quarter: 2019Q2

REPORT INFORMATION
  Report Type: Report from Study
  Country: FR (occurrence: FR)
  Receive Date: 20190528
  Receipt Date: 20190528
  Transmission Date: 20190711
  Serious: Yes (Other)
  Sender: FDA-Public Use
  Company Number: FR-JNJFOC-20190523600

PATIENT

DRUGS (1)
  1. RISPERIDONE. [Suspect]
     Active Substance: RISPERIDONE
     Indication: PRODUCT USED FOR UNKNOWN INDICATION
     Route: 065

REACTIONS (32)
  - Headache [Unknown]
  - Tremor [Unknown]
  - Mydriasis [Unknown]
  - Sinus tachycardia [Unknown]
  - Sedation [Unknown]
  - Vomiting [Unknown]
  - Somnolence [Unknown]
  - Electrocardiogram QT prolonged [Unknown]
  - Asthenia [Unknown]
  - Lethargy [Unknown]
  - Dizziness [Unknown]
  - Disorientation [Unknown]
  - Drooling [Unknown]
  - Body temperature increased [Unknown]
  - Incorrect dose administered [Unknown]
  - Ataxia [Unknown]
  - Dyskinesia [Unknown]
  - Hypotonia [Unknown]
  - Tachycardia [Unknown]
  - Abdominal pain [Unknown]
  - Dyspnoea [Unknown]
  - Coma [Unknown]
  - Syncope [Unknown]
  - Extrapyramidal disorder [Unknown]
  - Hypotension [Unknown]
  - Dysarthria [Unknown]
  - Agitation [Unknown]
  - Anxiety [Unknown]
  - Paraesthesia [Unknown]
  - Urinary incontinence [Unknown]
  - Miosis [Unknown]
  - Wrong product administered [Unknown]
